FAERS Safety Report 19510636 (Version 3)
Quarter: 2021Q3

REPORT INFORMATION
  Report Type: Report from Study
  Country: None (occurrence: US)
  Receive Date: 20210709
  Receipt Date: 20210804
  Transmission Date: 20211014
  Serious: Yes (Hospitalization)
  Sender: FDA-Public Use
  Company Number: US-CLINIGEN GROUP PLC/ CLINIGEN HEALTHCARE LTD-US-CLGN-21-00364

PATIENT
  Age: 58 Year
  Sex: Male
  Weight: 80.6 kg

DRUGS (6)
  1. PROLEUKIN [Suspect]
     Active Substance: ALDESLEUKIN
     Indication: NEOPLASM
     Route: 042
     Dates: start: 20210623, end: 20210625
  2. LN?144, LN?145 [Suspect]
     Active Substance: LIFILEUCEL
     Indication: NEOPLASM
     Route: 042
     Dates: start: 20210623, end: 20210623
  3. LN?145?S1 [Suspect]
     Active Substance: INVESTIGATIONAL PRODUCT
  4. FLUDARABINE [Suspect]
     Active Substance: FLUDARABINE PHOSPHATE
     Indication: NEOPLASM
     Route: 042
     Dates: start: 20210618, end: 20210622
  5. PEMBROLIZUMAB. [Suspect]
     Active Substance: PEMBROLIZUMAB
     Indication: NEOPLASM
     Route: 042
     Dates: start: 20210602, end: 20210602
  6. CYCLOPHOSPHAMIDE. [Suspect]
     Active Substance: CYCLOPHOSPHAMIDE
     Indication: NEOPLASM
     Route: 042
     Dates: start: 20210616, end: 20210617

REACTIONS (1)
  - Atrial fibrillation [Recovered/Resolved]

NARRATIVE: CASE EVENT DATE: 20210629
